FAERS Safety Report 15891051 (Version 1)
Quarter: 2019Q1

REPORT INFORMATION
  Report Type: Spontaneous
  Country: JP (occurrence: JP)
  Receive Date: 20190130
  Receipt Date: 20190130
  Transmission Date: 20190417
  Serious: Yes (Other)
  Sender: FDA-Public Use
  Company Number: JP-MYLANLABS-2019M1008242

PATIENT
  Sex: Female

DRUGS (1)
  1. DIGOXIN. [Suspect]
     Active Substance: DIGOXIN
     Indication: TACHYCARDIA FOETAL
     Dosage: MOTHER RECEIVED ORAL DIGOXIN 0.75 MG/DAY
     Route: 064

REACTIONS (4)
  - Bradycardia foetal [Recovered/Resolved]
  - Foetal exposure during pregnancy [Recovered/Resolved]
  - Atrial fibrillation [Recovered/Resolved]
  - Atrioventricular dissociation [Recovered/Resolved]
